FAERS Safety Report 9439658 (Version 1)
Quarter: 2013Q3

REPORT INFORMATION
  Report Type: Spontaneous
  Country: US (occurrence: US)
  Receive Date: 20130805
  Receipt Date: 20130805
  Transmission Date: 20140515
  Serious: No
  Sender: FDA-Public Use
  Company Number: US-PFIZER INC-2013224339

PATIENT
  Age: 62 Year
  Sex: Female

DRUGS (7)
  1. XELJANZ [Suspect]
     Dosage: 5 MG, 2X/DAY
     Route: 048
  2. PREMARIN [Concomitant]
     Dosage: 0.3 MG, UNK
  3. METHOTREXATE [Concomitant]
     Dosage: 2.5 MG, UNK
  4. METFORMIN [Concomitant]
     Dosage: 500 MG, UNK
  5. WELLBUTRIN [Concomitant]
     Dosage: 75 MG, UNK
  6. VITAMIN D [Concomitant]
     Dosage: 400 UNITS, UNK
  7. FOLIC ACID [Concomitant]
     Dosage: UNK

REACTIONS (1)
  - Muscle spasms [Unknown]
